FAERS Safety Report 7420737-X (Version None)
Quarter: 2011Q2

REPORT INFORMATION
  Report Type: 
  Country: None (occurrence: None)
  Receive Date: 20110408
  Receipt Date: 20110328
  Transmission Date: 20111010
  Serious: Yes (Hospitalization)
  Sender: FDA-Public Use
  Company Number: 1000019886

PATIENT
  Age: 39 Year
  Sex: Male
  Weight: 99 kg

DRUGS (10)
  1. TIMONIL (CARBAMAZEPINE) (600 MILLIGRAM, TABLETS) [Suspect]
     Dosage: 600 MG (600 MG, 1 IN 1 D), ORAL
     Route: 048
     Dates: start: 20110308, end: 20110308
  2. CITALOPRAM (CITALOPRAM HYDROBROMIDE) (20 MILLIGRAM, TABLETS) [Suspect]
     Dosage: 20 MG (20 MG, 1 IN 1 D), ORAL
     Route: 048
     Dates: start: 20110308, end: 20110308
  3. RIVOTRIL (CLONAZEPAM) (2 MILLIGRAM, TABLETS) [Suspect]
     Dosage: 2 MG (2 MG, 1 IN 1 D),ORAL
     Route: 048
     Dates: start: 20110308, end: 20110308
  4. ERGENYL CHRONO (SODIUM VALPROATE) (500 MILLIGRAM, TABLETS) [Suspect]
     Dosage: 500 MG (500 MG, 1 IN 1 D),ORAL
     Route: 048
     Dates: start: 20110308, end: 20110308
  5. CARBAMAZEPINE [Suspect]
     Dosage: 900 MG (900 MG, 1 IN 1 D), ORAL
     Route: 048
     Dates: start: 20110308, end: 20110308
  6. SEROQUEL (QUETIAPINE) (50 MILLIGRAM, TABLETS) [Suspect]
     Dosage: 50 MG (50 MG, 1 IN 1 D), ORAL
     Route: 048
     Dates: start: 20110308, end: 20110308
  7. TRIPLEPTAL (OXCARBAZEPINE) (600 MILLIGRAM,TABLETS) [Suspect]
     Dosage: 900 MG (900 MG,  1 IN 1 D), ORAL
     Route: 048
     Dates: start: 20110308, end: 20110308
  8. PANTOZOL (PANTOPRAZOLE) (20 MILLIGRAM, TABLETS) [Suspect]
     Dosage: 20 MG, (20 MG, 1 IN 1 D), ORAL
     Route: 048
     Dates: start: 20110308, end: 20110308
  9. DIPIPERON (PIPAMPERONE HYDROCHLORIDE) (40 MILLIGRAM, TABLETS) [Suspect]
     Dosage: 60 MG (60 MG, 1 IN 1 D),  ORAL
     Route: 048
     Dates: start: 20110308, end: 20110308
  10. NULYTELY [Suspect]
     Dosage: ORAL
     Route: 048
     Dates: start: 20110308, end: 20110308

REACTIONS (3)
  - DRUG ADMINISTRATION ERROR [None]
  - FATIGUE [None]
  - NAUSEA [None]
